FAERS Safety Report 7025406-6 (Version None)
Quarter: 2010Q4

REPORT INFORMATION
  Report Type: 
  Country: None (occurrence: None)
  Receive Date: 20101001
  Receipt Date: 20100923
  Transmission Date: 20110411
  Serious: Yes (Hospitalization)
  Sender: FDA-Public Use
  Company Number: PHHY2010DE64244

PATIENT
  Sex: Female

DRUGS (1)
  1. EXTAVIA [Suspect]
     Indication: MULTIPLE SCLEROSIS
     Dosage: 250 UG/ML, QOD
     Route: 058
     Dates: start: 20100323

REACTIONS (4)
  - ALLERGY TO METALS [None]
  - BREAST CANCER [None]
  - INJECTION SITE ERYTHEMA [None]
  - INJECTION SITE INFLAMMATION [None]
